FAERS Safety Report 14554771 (Version 1)
Quarter: 2018Q1

REPORT INFORMATION
  Report Type: Spontaneous
  Country: US (occurrence: US)
  Receive Date: 20180220
  Receipt Date: 20180220
  Transmission Date: 20180509
  Serious: No
  Sender: FDA-Public Use
  Company Number: US-BEH-2018088124

PATIENT
  Sex: Female
  Weight: 93 kg

DRUGS (14)
  1. HIZENTRA [Suspect]
     Active Substance: HUMAN IMMUNOGLOBULIN G
     Indication: IMMUNODEFICIENCY COMMON VARIABLE
     Dosage: 10 G, QW
     Route: 058
     Dates: start: 20180205
  2. ATENOLOL. [Concomitant]
     Active Substance: ATENOLOL
  3. FENOFIBRATE. [Concomitant]
     Active Substance: FENOFIBRATE
  4. PREMARIN [Concomitant]
     Active Substance: ESTROGENS, CONJUGATED
  5. VITAMIN D3 [Concomitant]
     Active Substance: CHOLECALCIFEROL
  6. ACETAMINOPHEN. [Concomitant]
     Active Substance: ACETAMINOPHEN
  7. METFORMIN [Concomitant]
     Active Substance: METFORMIN HYDROCHLORIDE
  8. NAPROXEN. [Concomitant]
     Active Substance: NAPROXEN
  9. METHOTREXATE. [Concomitant]
     Active Substance: METHOTREXATE
  10. LISINOPRIL. [Concomitant]
     Active Substance: LISINOPRIL
  11. EPINEPHRINE. [Concomitant]
     Active Substance: EPINEPHRINE
  12. DULOXETINE. [Concomitant]
     Active Substance: DULOXETINE
  13. HIZENTRA [Suspect]
     Active Substance: HUMAN IMMUNOGLOBULIN G
     Dosage: UNK
     Route: 058
  14. FOLIC ACID. [Concomitant]
     Active Substance: FOLIC ACID

REACTIONS (2)
  - Pharyngeal paraesthesia [Unknown]
  - Pruritus [Unknown]
